FAERS Safety Report 20680126 (Version 2)
Quarter: 2022Q2

REPORT INFORMATION
  Report Type: Spontaneous
  Country: DE (occurrence: DE)
  Receive Date: 20220406
  Receipt Date: 20220621
  Transmission Date: 20220721
  Serious: Yes (Death, Life-Threatening, Hospitalization, Other)
  Sender: FDA-Public Use
  Company Number: DE-GLAXOSMITHKLINE-DE2022EME038795

PATIENT
  Age: 74 Year
  Weight: 104 kg

DRUGS (11)
  1. METFORMIN [Suspect]
     Active Substance: METFORMIN HYDROCHLORIDE
     Indication: Product used for unknown indication
     Dosage: 850 MG, QD AT NIGHT, PEICE
     Route: 065
  2. SOTROVIMAB [Suspect]
     Active Substance: SOTROVIMAB
     Indication: Product used for unknown indication
     Dosage: UNK
     Route: 065
     Dates: start: 20220223
  3. SOTROVIMAB [Suspect]
     Active Substance: SOTROVIMAB
     Indication: COVID-19
  4. MIRTAZAPINE [Suspect]
     Active Substance: MIRTAZAPINE
     Indication: COVID-19
     Dosage: 15 MG, AT NIGHT IF NEEDED, 0.5 TABLET
     Route: 065
  5. JARDIANCE [Suspect]
     Active Substance: EMPAGLIFLOZIN
     Indication: Product used for unknown indication
     Dosage: 25 MG, QD, MORNING
     Route: 065
  6. BISOPROLOL FUMARATE [Suspect]
     Active Substance: BISOPROLOL FUMARATE
     Indication: Product used for unknown indication
     Dosage: UNK, QD AT MORNING
     Route: 065
  7. LANTUS SOLOSTAR [Suspect]
     Active Substance: INSULIN GLARGINE
     Indication: Product used for unknown indication
     Dosage: UNK, 100 E/ML
     Route: 065
  8. TAMSULOSIN [Suspect]
     Active Substance: TAMSULOSIN
     Indication: Product used for unknown indication
     Dosage: 0.4 MG, QD AT NIGHT
     Route: 065
  9. CLOPIDOGREL BISULFATE [Suspect]
     Active Substance: CLOPIDOGREL BISULFATE
     Indication: Product used for unknown indication
     Dosage: 75 MG, QD, AT MORNING
     Route: 065
  10. ALLOPURINOL [Suspect]
     Active Substance: ALLOPURINOL
     Indication: Product used for unknown indication
     Dosage: 300 MG, QD, 0.5 TAB, AT MORNING
     Route: 065
  11. AMLODIPINE\ATORVASTATIN\PERINDOPRIL [Suspect]
     Active Substance: AMLODIPINE\ATORVASTATIN\PERINDOPRIL
     Indication: Product used for unknown indication
     Dosage: UNK, QD, 20MG/5 MG/5 MG (PIECE)AT MORNING
     Route: 065

REACTIONS (12)
  - Fibrin D dimer increased [Fatal]
  - Basal ganglia haemorrhage [Fatal]
  - Systemic inflammatory response syndrome [Fatal]
  - Vomiting [Fatal]
  - Somnolence [Fatal]
  - Fatigue [Fatal]
  - Nausea [Fatal]
  - General physical health deterioration [Fatal]
  - COVID-19 pneumonia [Fatal]
  - Staphylococcal sepsis [Unknown]
  - Asthenia [Unknown]
  - Blood lactate dehydrogenase increased [Unknown]

NARRATIVE: CASE EVENT DATE: 20220224
